FAERS Safety Report 16816421 (Version 2)
Quarter: 2020Q1

REPORT INFORMATION
  Report Type: Spontaneous
  Country: BR (occurrence: BR)
  Receive Date: 20190917
  Receipt Date: 20200211
  Transmission Date: 20200409
  Serious: Yes (Other)
  Sender: FDA-Public Use
  Company Number: BR-GLAXOSMITHKLINE-BR2019GSK074154

PATIENT
  Age: 47 Year
  Sex: Female
  Weight: 84 kg

DRUGS (1)
  1. BENLYSTA [Suspect]
     Active Substance: BELIMUMAB
     Indication: SYSTEMIC LUPUS ERYTHEMATOSUS
     Dosage: UNK
     Dates: start: 20190128

REACTIONS (17)
  - Hypertension [Unknown]
  - Fibromyalgia [Unknown]
  - Hepatic steatosis [Unknown]
  - Hepatic infection bacterial [Unknown]
  - Decreased immune responsiveness [Unknown]
  - Asthenia [Unknown]
  - Product dose omission [Unknown]
  - Therapy cessation [Unknown]
  - Inappropriate schedule of product administration [Unknown]
  - Alopecia [Unknown]
  - Urinary tract infection [Unknown]
  - Thyroid disorder [Unknown]
  - Foot fracture [Unknown]
  - Weight decreased [Unknown]
  - Osteoarthritis [Unknown]
  - Metabolic surgery [Unknown]
  - Product availability issue [Unknown]

NARRATIVE: CASE EVENT DATE: 20190429
